FAERS Safety Report 9663788 (Version 2)
Quarter: 2013Q4

REPORT INFORMATION
  Report Type: Report from Study
  Country: JP (occurrence: JP)
  Receive Date: 20131101
  Receipt Date: 20131112
  Transmission Date: 20140711
  Serious: Yes (Other)
  Sender: FDA-Public Use
  Company Number: JP-NOVOPROD-391005

PATIENT
  Age: 14 Year
  Sex: Female
  Weight: 52.5 kg

DRUGS (6)
  1. NORDITROPIN FLEXPRO 10 MG/ML [Suspect]
     Indication: GROWTH HORMONE DEFICIENCY
     Dosage: UNK (6.6MG/WEEK)
     Route: 058
     Dates: start: 20110524, end: 20120313
  2. NORDITROPIN FLEXPRO 10 MG/ML [Suspect]
     Dosage: 1.10 MG, QD
     Route: 058
     Dates: start: 20120524, end: 20130508
  3. THYRADIN S [Concomitant]
     Indication: HYPOPITUITARISM
     Dosage: UNK (75-125 MCG)
     Route: 048
     Dates: start: 2003
  4. HYDROCORTISONE [Concomitant]
     Indication: HYPOPITUITARISM
     Dosage: 10 MG, QD
     Route: 048
     Dates: start: 2003
  5. DESMOPRESSIN ACETATE [Concomitant]
     Indication: HYPOPITUITARISM
     Dosage: 7.5 ?G , QD
     Route: 045
     Dates: start: 2003
  6. PREMARIN [Concomitant]
     Indication: HYPOPITUITARISM
     Dosage: 0.62 MG, QD
     Route: 048
     Dates: start: 20120904, end: 20130508

REACTIONS (1)
  - Craniopharyngioma [Recovering/Resolving]
